FAERS Safety Report 8218932-5 (Version None)
Quarter: 2012Q1

REPORT INFORMATION
  Report Type: 
  Country: None (occurrence: None)
  Receive Date: 20120319
  Receipt Date: 20120314
  Transmission Date: 20120608
  Serious: Yes (Life-Threatening, Hospitalization, Other)
  Sender: FDA-Public Use
  Company Number: MX-NOVOPROD-343774

PATIENT
  Age: 33 Year
  Sex: Female
  Weight: 80.9 kg

DRUGS (4)
  1. LIRAGLUTIDE FLEXPEN [Suspect]
     Dosage: 3 MG, QD
     Route: 058
     Dates: start: 20120203
  2. LIRAGLUTIDE FLEXPEN [Suspect]
     Dosage: 3 MG, QD
     Route: 058
     Dates: start: 20110823, end: 20120129
  3. LIRAGLUTIDE FLEXPEN [Suspect]
     Indication: OBESITY
     Dosage: 0.6 MG, QD
     Route: 058
     Dates: start: 20110727
  4. ESTROGEN [Concomitant]

REACTIONS (1)
  - CHOLELITHIASIS [None]
